FAERS Safety Report 17036787 (Version 1)
Quarter: 2019Q4

REPORT INFORMATION
  Report Type: Spontaneous
  Country: US (occurrence: US)
  Receive Date: 20191016
  Receipt Date: 20191016
  Transmission Date: 20200122
  Serious: No
  Sender: FDA-Public Use
  Company Number: None

PATIENT
  Age: 53 Year
  Sex: Female

DRUGS (5)
  1. IBRANCE [Suspect]
     Active Substance: PALBOCICLIB
     Route: 048
     Dates: start: 20190824
  2. FASLODEX [Concomitant]
     Active Substance: FULVESTRANT
  3. VITAMIN D [Concomitant]
     Active Substance: VITAMIN D NOS
  4. BREO ELLIPTA [Concomitant]
     Active Substance: FLUTICASONE FUROATE\VILANTEROL TRIFENATATE
  5. ELIPTA [Concomitant]

REACTIONS (2)
  - Neutropenia [None]
  - Neutrophil count decreased [None]

NARRATIVE: CASE EVENT DATE: 20191016
